FAERS Safety Report 23040064 (Version 2)
Quarter: 2023Q4

REPORT INFORMATION
  Report Type: Report from Study
  Country: US (occurrence: US)
  Receive Date: 20231006
  Receipt Date: 20231012
  Transmission Date: 20240109
  Serious: Yes (Other)
  Sender: FDA-Public Use
  Company Number: US-ARGENX-2023-ARGX-US001701

PATIENT

DRUGS (2)
  1. VYVGART [Suspect]
     Active Substance: EFGARTIGIMOD ALFA-FCAB
     Indication: Myasthenia gravis
     Dosage: 10 MG/KG
     Route: 042
     Dates: start: 20230602
  2. VYVGART [Suspect]
     Active Substance: EFGARTIGIMOD ALFA-FCAB
     Dosage: 10 MG/KG
     Route: 042

REACTIONS (7)
  - Renal impairment [Recovered/Resolved]
  - Headache [Unknown]
  - Therapy non-responder [Unknown]
  - Product storage error [Unknown]
  - Product dose omission issue [Unknown]
  - Blood pressure increased [Unknown]
  - Muscular weakness [Unknown]
